FAERS Safety Report 18067356 (Version 1)
Quarter: 2020Q3

REPORT INFORMATION
  Report Type: Spontaneous
  Country: US (occurrence: US)
  Receive Date: 20200724
  Receipt Date: 20200724
  Transmission Date: 20201103
  Serious: Yes (Hospitalization, Other)
  Sender: FDA-Public Use
  Company Number: US-BAYER-2020-141451

PATIENT
  Age: 67 Year
  Sex: Female

DRUGS (9)
  1. AMLODIPINE [Concomitant]
     Active Substance: AMLODIPINE BESYLATE
     Dosage: 1 DF, QD
  2. BACLOFEN. [Concomitant]
     Active Substance: BACLOFEN
     Dosage: 1 DF, BID
  3. KENALOG [Concomitant]
     Active Substance: TRIAMCINOLONE ACETONIDE
  4. XELJANZ [Suspect]
     Active Substance: TOFACITINIB CITRATE
     Dosage: 5 MG, BID
     Route: 048
     Dates: start: 201902
  5. TYLENOL [Concomitant]
     Active Substance: ACETAMINOPHEN
     Dosage: 325 MG
  6. VITAMIN D3 [Concomitant]
     Active Substance: CHOLECALCIFEROL
  7. ASPIRIN (CARDIO) [Suspect]
     Active Substance: ASPIRIN
  8. GABAPENTIN. [Suspect]
     Active Substance: GABAPENTIN
     Indication: NEURALGIA
     Dosage: 300 MG
  9. XANAX [Suspect]
     Active Substance: ALPRAZOLAM
     Dosage: 0.25 MG

REACTIONS (3)
  - Enterocolitis haemorrhagic [Unknown]
  - Colitis [Unknown]
  - Drug hypersensitivity [Unknown]
